FAERS Safety Report 4957146-9 (Version None)
Quarter: 2006Q1

REPORT INFORMATION
  Report Type: 
  Country: None (occurrence: None)
  Receive Date: 20060329
  Receipt Date: 20051107
  Transmission Date: 20060701
  Serious: Yes (Hospitalization, Disabling)
  Sender: FDA-Public Use
  Company Number: US-MERCK-0511USA01332

PATIENT
  Age: 46 Year
  Sex: Male
  Weight: 80 kg

DRUGS (6)
  1. VIOXX [Suspect]
     Indication: ARTHRALGIA
     Route: 048
     Dates: start: 20000312, end: 20000819
  2. PRILOSEC [Concomitant]
     Route: 048
     Dates: start: 20000312, end: 20010217
  3. CLARITIN [Concomitant]
     Route: 065
     Dates: start: 20000312, end: 20010217
  4. ACIPHEX [Concomitant]
     Route: 065
     Dates: start: 20000312, end: 20010217
  5. TRICOR [Concomitant]
     Route: 065
     Dates: start: 20000312, end: 20010217
  6. LIPITOR [Concomitant]
     Route: 065
     Dates: start: 20000312, end: 20010217

REACTIONS (9)
  - BARRETT'S OESOPHAGUS [None]
  - BLOOD CHOLESTEROL INCREASED [None]
  - CARDIAC FAILURE CONGESTIVE [None]
  - CHEST PAIN [None]
  - CHRONIC OBSTRUCTIVE PULMONARY DISEASE [None]
  - CORONARY ARTERY DISEASE [None]
  - GASTROOESOPHAGEAL REFLUX DISEASE [None]
  - HYPERTENSION [None]
  - MYOCARDIAL INFARCTION [None]
